FAERS Safety Report 6053854-X (Version None)
Quarter: 2009Q1

REPORT INFORMATION
  Report Type: 
  Country: None (occurrence: None)
  Receive Date: 20090123
  Receipt Date: 20090116
  Transmission Date: 20090719
  Serious: Yes (Death)
  Sender: FDA-Public Use
  Company Number: 000514

PATIENT
  Age: 24 Year
  Sex: Male

DRUGS (8)
  1. BUSULFEX [Suspect]
     Indication: STEM CELL TRANSPLANT
     Dosage: 0.8 MG/KG, QID INTRAVENOUS
     Route: 042
     Dates: start: 20061106, end: 20061107
  2. CYTARABINE [Concomitant]
  3. CYCLOPHOSPHAMIDE [Concomitant]
  4. VALPROATE SODIUM [Concomitant]
  5. NIMUSTINE (NIMUSTINE) [Concomitant]
  6. MESNA [Concomitant]
  7. CYCLOSPORINE [Concomitant]
  8. FILGRASTIM (FILGRASTIM) [Concomitant]

REACTIONS (3)
  - NAUSEA [None]
  - PNEUMONIA STAPHYLOCOCCAL [None]
  - VOMITING [None]
